FAERS Safety Report 25278824 (Version 1)
Quarter: 2025Q2

REPORT INFORMATION
  Report Type: Spontaneous
  Country: US (occurrence: US)
  Receive Date: 20250507
  Receipt Date: 20250507
  Transmission Date: 20250717
  Serious: Yes (Hospitalization)
  Sender: AUROBINDO
  Company Number: US-AUROBINDO-AUR-APL-2025-022855

PATIENT
  Age: 64 Year
  Weight: 99.33 kg

DRUGS (1)
  1. TESTOSTERONE CYPIONATE [Suspect]
     Active Substance: TESTOSTERONE CYPIONATE
     Indication: Hypogonadism
     Dosage: 1 MILLILITER, EVERY WEEK
     Route: 030

REACTIONS (2)
  - Injection site abscess [Not Recovered/Not Resolved]
  - Liquid product physical issue [Unknown]
